FAERS Safety Report 9898383 (Version 4)
Quarter: 2014Q2

REPORT INFORMATION
  Report Type: Spontaneous
  Country: DE (occurrence: DE)
  Receive Date: 20140214
  Receipt Date: 20140423
  Transmission Date: 20141212
  Serious: Yes (Life-Threatening, Disabling, Other)
  Sender: FDA-Public Use
  Company Number: DE-ELI_LILLY_AND_COMPANY-DE201402000130

PATIENT
  Age: 73 Year
  Sex: Male
  Weight: 97 kg

DRUGS (10)
  1. EFIENT [Suspect]
     Indication: CARDIAC DISORDER
     Dosage: 10 MG, QD
     Route: 048
     Dates: start: 2008, end: 20140202
  2. EFIENT [Suspect]
     Indication: CORONARY ARTERIAL STENT INSERTION
  3. BRILIQUE [Suspect]
  4. SORTIS [Suspect]
     Dosage: 40 MG, EACH EVENING
     Route: 065
     Dates: start: 2008
  5. ALLOPURINOL [Concomitant]
     Indication: HYPERURICAEMIA
     Dosage: 300 MG, 2/W
     Dates: start: 2008
  6. DILATREND [Concomitant]
     Indication: HYPERTENSION
     Dosage: 12.5 MG, BID
     Dates: start: 2003
  7. MICARDIS [Concomitant]
     Dosage: 20 MG, EACH EVENING
     Dates: start: 2008
  8. ZODIN                              /00397401/ [Concomitant]
     Dosage: 1 DF, BID
     Dates: start: 2008
  9. ISCOVER [Concomitant]
     Route: 048
  10. ISOKET RETARD [Concomitant]
     Indication: ANGINA PECTORIS
     Dosage: 80 MG, QD
     Route: 048
     Dates: start: 2004

REACTIONS (12)
  - Lung adenocarcinoma [Recovered/Resolved]
  - Angioedema [Recovered/Resolved with Sequelae]
  - Performance status decreased [Not Recovered/Not Resolved]
  - Bronchitis [Recovered/Resolved with Sequelae]
  - Nocturnal dyspnoea [Not Recovered/Not Resolved]
  - Laryngeal oedema [Not Recovered/Not Resolved]
  - Hyperuricaemia [Unknown]
  - Cough [Unknown]
  - Vocal cord disorder [Unknown]
  - Eczema [Recovered/Resolved with Sequelae]
  - Asthenia [Unknown]
  - Suffocation feeling [Recovering/Resolving]
